FAERS Safety Report 8436126-5 (Version None)
Quarter: 2012Q2

REPORT INFORMATION
  Report Type: 
  Country: None (occurrence: None)
  Receive Date: 20120614
  Receipt Date: 20120608
  Transmission Date: 20120825
  Serious: Yes (Life-Threatening)
  Sender: FDA-Public Use
  Company Number: FR-ROCHE-1077107

PATIENT
  Age: 73 Year
  Sex: Female

DRUGS (9)
  1. REPAGLINIDE [Concomitant]
  2. MABTHERA [Suspect]
     Indication: VASCULITIS
     Route: 042
     Dates: start: 20110404
  3. LYRICA [Concomitant]
  4. CALCIDOSE VITAMINE D [Concomitant]
     Route: 048
  5. CRESTOR [Concomitant]
  6. PREDNISONE TAB [Concomitant]
  7. ASPIRIN [Concomitant]
     Route: 048
  8. IRBESARTAN [Concomitant]
  9. LASIX [Concomitant]

REACTIONS (2)
  - CARDIAC FAILURE [None]
  - ACUTE PULMONARY OEDEMA [None]
